FAERS Safety Report 9555821 (Version 2)
Quarter: 2013Q4

REPORT INFORMATION
  Report Type: Spontaneous
  Country: US (occurrence: None)
  Receive Date: 20130724
  Receipt Date: 20131226
  Transmission Date: 20140711
  Serious: Yes (Other)
  Sender: FDA-Public Use
  Company Number: PHEH2013US010547

PATIENT
  Age: 33 Year
  Sex: Male

DRUGS (4)
  1. GILENYA (FINGOLIMOD) CAPSULE, 0.5MG [Suspect]
     Route: 048
     Dates: start: 20130311, end: 20130509
  2. TAMSULOSIN (TAMSULOSIN) [Concomitant]
  3. CIALIS (TADALAFIL) [Concomitant]
  4. HYDROMORPHOE (HYDROMORPHONE) [Concomitant]

REACTIONS (3)
  - Macular oedema [None]
  - Vision blurred [None]
  - Visual acuity reduced [None]
